FAERS Safety Report 6355782-9 (Version None)
Quarter: 2009Q3

REPORT INFORMATION
  Report Type: 
  Country: None (occurrence: None)
  Receive Date: 20090915
  Receipt Date: 20080303
  Transmission Date: 20100115
  Serious: Yes (Other)
  Sender: FDA-Public Use
  Company Number: US-ASTRAZENECA-2006UW11748

PATIENT
  Age: 15688 Day
  Sex: Female
  Weight: 138.8 kg

DRUGS (20)
  1. SEROQUEL [Suspect]
     Indication: BIPOLAR DISORDER
     Route: 048
     Dates: start: 20040101, end: 20050101
  2. SEROQUEL [Suspect]
     Dosage: 500MG-1000MG
     Route: 048
     Dates: start: 20050627
  3. SEROQUEL [Suspect]
     Dosage: 400MG-500MG
     Route: 048
     Dates: start: 20051019
  4. SYNTHROID [Concomitant]
     Route: 048
     Dates: start: 20050503
  5. ZESTORETIC [Concomitant]
     Dosage: 20-25MG, EVERY MORNING
     Route: 048
     Dates: start: 20050705
  6. NOVOLOG MIX 70/30 [Concomitant]
     Dosage: 65U IN MORNING,45U EVENING, SUBCUTANEOUSLY
     Dates: start: 20050818
  7. ALBUTEROL SULPHATE [Concomitant]
     Dosage: 0.083 PERCENT, 3ML EVERYDAY
     Route: 048
     Dates: start: 20051123
  8. ESTRATEST [Concomitant]
     Dosage: 1 TABLET DAILY
     Route: 048
     Dates: start: 20060103
  9. SINGULAIR [Concomitant]
     Indication: ASTHMA
     Route: 048
     Dates: start: 20060417
  10. EFFEXOR [Concomitant]
     Route: 048
     Dates: start: 20040503
  11. DOXEPIN HCL [Concomitant]
     Route: 048
     Dates: start: 20060406
  12. LIPITOR [Concomitant]
     Route: 048
     Dates: start: 20071120
  13. LANTUS [Concomitant]
     Dosage: 20 UNITS AT NIGHT
     Route: 048
     Dates: start: 20040225
  14. NORVASC [Concomitant]
     Route: 048
     Dates: start: 20050303
  15. KLONOPIN [Concomitant]
     Route: 048
     Dates: start: 20040503
  16. LITHIUM CARBONATE [Concomitant]
     Route: 048
     Dates: start: 20040820
  17. TRAZODONE [Concomitant]
     Dosage: 150 MG, 2 TABLETS AT NIGHT
     Route: 048
     Dates: start: 20050110
  18. PROTONIX [Concomitant]
     Indication: GASTROOESOPHAGEAL REFLUX DISEASE
     Route: 048
     Dates: start: 20040506
  19. PRILOSEC [Concomitant]
     Route: 048
     Dates: start: 20040503
  20. DEPAKOTE [Concomitant]
     Dosage: 500 MG EVERY MORNING, 1000 MG AT NIGHT
     Route: 048
     Dates: start: 20050110

REACTIONS (3)
  - DIABETES MELLITUS [None]
  - DIABETES MELLITUS INADEQUATE CONTROL [None]
  - DIABETIC COMPLICATION [None]
